FAERS Safety Report 7513126-0 (Version None)
Quarter: 2011Q2

REPORT INFORMATION
  Report Type: 
  Country: None (occurrence: None)
  Receive Date: 20110531
  Receipt Date: 20110525
  Transmission Date: 20111010
  Serious: Yes (Death)
  Sender: FDA-Public Use
  Company Number: US-ABBOTT-11P-163-0724186-00

PATIENT
  Sex: Female
  Weight: 43.13 kg

DRUGS (8)
  1. CARDIZEM [Concomitant]
     Indication: HYPERTENSION
     Dates: start: 20060101, end: 20100101
  2. ACTONEL [Concomitant]
     Indication: PRODUCT USED FOR UNKNOWN INDICATION
     Dates: start: 20070101, end: 20100101
  3. ENALAPRIL [Concomitant]
     Indication: HYPERTENSION
     Dates: start: 20060101, end: 20100101
  4. ULTRAM [Concomitant]
     Indication: PRODUCT USED FOR UNKNOWN INDICATION
     Dates: start: 20050101, end: 20100101
  5. HUMIRA [Suspect]
     Indication: RHEUMATOID ARTHRITIS
     Route: 058
     Dates: start: 20060301, end: 20100401
  6. HEPARIN [Concomitant]
     Indication: THROMBOSIS
     Route: 058
     Dates: start: 19860101, end: 20100101
  7. PREMARIN [Concomitant]
     Indication: PRODUCT USED FOR UNKNOWN INDICATION
     Dates: start: 19770101, end: 20100101
  8. PREDNISOLONE [Concomitant]
     Indication: RHEUMATOID ARTHRITIS

REACTIONS (6)
  - LIMB INJURY [None]
  - RESPIRATORY DISTRESS [None]
  - SYNCOPE [None]
  - DYSPNOEA [None]
  - PULMONARY EMBOLISM [None]
  - CARDIOPULMONARY FAILURE [None]
